FAERS Safety Report 11664739 (Version 2)
Quarter: 2015Q4

REPORT INFORMATION
  Report Type: Spontaneous
  Country: FR (occurrence: FR)
  Receive Date: 20151027
  Receipt Date: 20151029
  Transmission Date: 20160304
  Serious: Yes (Disabling)
  Sender: FDA-Public Use
  Company Number: PHHY2015FR132689

PATIENT
  Age: 15 Year
  Sex: Male

DRUGS (10)
  1. GLIVEC [Suspect]
     Active Substance: IMATINIB MESYLATE
     Indication: ACUTE LYMPHOCYTIC LEUKAEMIA
     Dosage: UNK
     Route: 048
     Dates: start: 20141105
  2. ENDOXAN [Suspect]
     Active Substance: CYCLOPHOSPHAMIDE
     Indication: T-CELL TYPE ACUTE LEUKAEMIA
     Dosage: UNK
     Route: 042
     Dates: start: 20140925, end: 20141026
  3. METHOTREXATE [Suspect]
     Active Substance: METHOTREXATE
     Indication: T-CELL TYPE ACUTE LEUKAEMIA
     Dosage: 15 MG/CYCLE
     Route: 037
     Dates: start: 20140920, end: 20141103
  4. ERWINASE [Suspect]
     Active Substance: ASPARAGINASE ERWINIA CHRYSANTHEMI
     Indication: T-CELL TYPE ACUTE LEUKAEMIA
     Dosage: 20 MG/CYCLE
     Route: 042
     Dates: start: 20140926, end: 20141017
  5. ETOPOPHOS [Suspect]
     Active Substance: ETOPOSIDE PHOSPHATE
     Indication: T-CELL TYPE ACUTE LEUKAEMIA
     Dosage: 170 MG/CYCLE
     Route: 042
     Dates: start: 20141025, end: 20141028
  6. ATRIANCE [Suspect]
     Active Substance: NELARABINE
     Indication: T-CELL TYPE ACUTE LEUKAEMIA
     Dosage: 1100 MG/CYCLE
     Route: 042
     Dates: start: 20141024, end: 20141028
  7. VINCRISTINE HOSPIRA [Suspect]
     Active Substance: VINCRISTINE
     Indication: T-CELL TYPE ACUTE LEUKAEMIA
     Dosage: PER CYCLE
     Route: 042
     Dates: start: 20140923, end: 20141016
  8. METHYLPREDNISOLONE MYLAN [Suspect]
     Active Substance: METHYLPREDNISOLONE
     Indication: T-CELL TYPE ACUTE LEUKAEMIA
     Dosage: 20 MG/CYCLE
     Route: 037
     Dates: start: 20140926, end: 20141103
  9. ARACYTINE [Suspect]
     Active Substance: CYTARABINE
     Indication: T-CELL TYPE ACUTE LEUKAEMIA
     Dosage: 30 MG/CYCLE
     Route: 037
     Dates: start: 20140926, end: 20141103
  10. CISPLATINE [Concomitant]
     Active Substance: CISPLATIN
     Indication: ACUTE LYMPHOCYTIC LEUKAEMIA
     Dosage: UNK
     Route: 065
     Dates: start: 20141025

REACTIONS (1)
  - Polyneuropathy [Recovering/Resolving]

NARRATIVE: CASE EVENT DATE: 20141107
